FAERS Safety Report 8921391 (Version 3)
Quarter: 2013Q1

REPORT INFORMATION
  Report Type: Spontaneous
  Country: US (occurrence: US)
  Receive Date: 20121121
  Receipt Date: 20130325
  Transmission Date: 20140127
  Serious: No
  Sender: FDA-Public Use
  Company Number: US-ASTRAZENECA-2011SE69464

PATIENT
  Age: 43 Year
  Sex: Female

DRUGS (4)
  1. SEROQUEL XR [Suspect]
     Indication: BIPOLAR DISORDER
     Route: 048
  2. SEROQUEL XR [Suspect]
     Indication: BIPOLAR DISORDER
     Route: 048
  3. KLONOPIN [Concomitant]
  4. VALIUM [Concomitant]

REACTIONS (4)
  - Blister [Not Recovered/Not Resolved]
  - Skin maceration [Unknown]
  - Dysarthria [Unknown]
  - Somnolence [Unknown]
